FAERS Safety Report 6125643-9 (Version None)
Quarter: 2009Q1

REPORT INFORMATION
  Report Type: 
  Country: None (occurrence: None)
  Receive Date: 20090317
  Receipt Date: 20090304
  Transmission Date: 20090719
  Serious: Yes (Hospitalization)
  Sender: FDA-Public Use
  Company Number: 1-17752916

PATIENT
  Age: 66 Year
  Sex: Male

DRUGS (5)
  1. FENTANYL-100 [Suspect]
     Indication: GENERAL ANAESTHESIA
     Dosage: INTRAVENOUS
     Route: 042
     Dates: start: 20090208, end: 20090208
  2. PROPOFOL [Suspect]
     Indication: GENERAL ANAESTHESIA
     Dosage: INTRAVENOUS
     Route: 042
     Dates: start: 20090208, end: 20090208
  3. AMOXICILLIN [Concomitant]
     Indication: GENERAL ANAESTHESIA
     Dosage: INTRAVENOUS
     Route: 042
     Dates: start: 20090208, end: 20090208
  4. GENTAMICIN [Suspect]
     Indication: GENERAL ANAESTHESIA
     Dosage: INTRAVENOUS
     Route: 042
     Dates: start: 20090208, end: 20090208
  5. KETOROLAC [Suspect]
     Indication: GENERAL ANAESTHESIA
     Dosage: INTRAVENOUS
     Route: 042
     Dates: start: 20090208, end: 20090208

REACTIONS (1)
  - ERYTHEMA [None]
